FAERS Safety Report 18211569 (Version 1)
Quarter: 2020Q3

REPORT INFORMATION
  Report Type: Spontaneous
  Country: PL (occurrence: PL)
  Receive Date: 20200831
  Receipt Date: 20200831
  Transmission Date: 20201103
  Serious: Yes (Hospitalization, Other)
  Sender: FDA-Public Use
  Company Number: PL-BAXTER-2020BAX017948

PATIENT
  Age: 61 Year
  Sex: Female

DRUGS (1)
  1. DOXIL [Suspect]
     Active Substance: DOXORUBICIN HYDROCHLORIDE
     Indication: OVARIAN CANCER
     Dosage: 20 MG/10 ML
     Route: 065

REACTIONS (3)
  - Toxicity to various agents [Unknown]
  - Transfusion [Unknown]
  - Disease progression [Unknown]
